FAERS Safety Report 8771293 (Version 1)
Quarter: 2012Q4

REPORT INFORMATION
  Report Type: 
  Country: CH (occurrence: CH)
  Receive Date: 20120906
  Receipt Date: 20120906
  Transmission Date: 20130627
  Serious: Yes (Hospitalization)
  Sender: FDA-Public Use
  Company Number: PHHY2012CH076710

PATIENT
  Age: 85 Year
  Sex: Male

DRUGS (1)
  1. ZOMETA [Suspect]
     Indication: PROSTATE CANCER
     Dosage: 1 dosage form per 1 month
     Route: 042
     Dates: start: 201002

REACTIONS (3)
  - Osteonecrosis of jaw [Unknown]
  - Mucosal inflammation [Unknown]
  - Bacterial infection [Unknown]
